FAERS Safety Report 8023372-8 (Version None)
Quarter: 2012Q1

REPORT INFORMATION
  Report Type: 
  Country: None (occurrence: None)
  Receive Date: 20120104
  Receipt Date: 20111230
  Transmission Date: 20120608
  Serious: Yes (Other)
  Sender: FDA-Public Use
  Company Number: JP-PFIZER INC-2011309618

PATIENT
  Age: 78 Year
  Sex: Male

DRUGS (10)
  1. PROGRAF [Suspect]
     Indication: RHEUMATOID ARTHRITIS
     Dosage: 1 MG, 1X/DAY
     Route: 048
  2. ALOGLIPTIN BENZOATE [Concomitant]
  3. REZALTAS [Concomitant]
  4. LANIRAPID [Concomitant]
  5. ALPRAZOLAM [Concomitant]
  6. AMARYL [Concomitant]
  7. CELECOXIB [Suspect]
     Route: 048
  8. ZOLPIDEM [Concomitant]
     Dosage: 10 MG, UNK
  9. MUCOSTA [Concomitant]
  10. CARVEDILOL [Concomitant]

REACTIONS (1)
  - GLYCOSYLATED HAEMOGLOBIN INCREASED [None]
